FAERS Safety Report 11930039 (Version 1)
Quarter: 2016Q1

REPORT INFORMATION
  Report Type: Spontaneous
  Country: US (occurrence: None)
  Receive Date: 20160119
  Receipt Date: 20160119
  Transmission Date: 20160526
  Serious: Yes (Other)
  Sender: FDA-Public Use
  Company Number: None

PATIENT
  Age: 49 Year
  Sex: Female
  Weight: 133.81 kg

DRUGS (1)
  1. PROZAC [Suspect]
     Active Substance: FLUOXETINE HYDROCHLORIDE
     Indication: DEPRESSION
     Dosage: 1 PILL?LESS THAN 6 MONTHS
     Route: 048

REACTIONS (4)
  - Swollen tongue [None]
  - Tongue disorder [None]
  - Tardive dyskinesia [None]
  - Middle insomnia [None]
